FAERS Safety Report 18095289 (Version 2)
Quarter: 2020Q3

REPORT INFORMATION
  Report Type: Report from Study
  Country: CA (occurrence: CA)
  Receive Date: 20200730
  Receipt Date: 20200817
  Transmission Date: 20201103
  Serious: Yes (Death, Hospitalization, Other)
  Sender: FDA-Public Use
  Company Number: NVSC2020CA213243

PATIENT

DRUGS (14)
  1. HYDROMORPHONE [Concomitant]
     Active Substance: HYDROMORPHONE
  2. HIDROCORTISON [Concomitant]
     Active Substance: HYDROCORTISONE
  3. INSULIN [Concomitant]
     Active Substance: INSULIN NOS
  4. TACROLIMUS. [Concomitant]
     Active Substance: TACROLIMUS
  5. VANCOMYCIN [Concomitant]
     Active Substance: VANCOMYCIN
  6. MMF [Concomitant]
     Active Substance: MYCOPHENOLATE MOFETIL
  7. GANCICLOVIR. [Concomitant]
     Active Substance: GANCICLOVIR
  8. DEXEMEDETOMIDINE [Concomitant]
     Active Substance: DEXMEDETOMIDINE
  9. PREDNISONE. [Concomitant]
     Active Substance: PREDNISONE
  10. CLOFAZIMINE [Suspect]
     Active Substance: CLOFAZIMINE
     Indication: MYCOBACTERIUM ABSCESSUS INFECTION
     Dosage: 100 MG
     Route: 048
     Dates: start: 20200217, end: 20200514
  11. TIGECYCLINE. [Concomitant]
     Active Substance: TIGECYCLINE
  12. AMIKACIN. [Concomitant]
     Active Substance: AMIKACIN
  13. AMPHOTERICIN B. [Concomitant]
     Active Substance: AMPHOTERICIN B
  14. HEPARIN [Concomitant]
     Active Substance: HEPARIN SODIUM

REACTIONS (3)
  - Hepatic failure [Fatal]
  - Gastrointestinal disorder [Unknown]
  - Intestinal ischaemia [Unknown]
